FAERS Safety Report 4292356-8 (Version None)
Quarter: 2004Q1

REPORT INFORMATION
  Report Type: 
  Country: None (occurrence: None)
  Receive Date: 20040126
  Receipt Date: 20030826
  Transmission Date: 20041129
  Serious: No
  Sender: FDA-Public Use
  Company Number: USA030845413

PATIENT
  Age: 54 Year
  Sex: Female
  Weight: 73 kg

DRUGS (2)
  1. FORTEO [Suspect]
     Indication: RIB FRACTURE
     Dates: start: 20030822
  2. FORTEO [Suspect]
     Indication: STRESS FRACTURE
     Dates: start: 20030822

REACTIONS (4)
  - PRURITUS [None]
  - RASH ERYTHEMATOUS [None]
  - SKIN IRRITATION [None]
  - URTICARIA [None]
